FAERS Safety Report 23276422 (Version 1)
Quarter: 2023Q4

REPORT INFORMATION
  Report Type: Spontaneous
  Country: CN (occurrence: CN)
  Receive Date: 20231208
  Receipt Date: 20231208
  Transmission Date: 20240110
  Serious: Yes (Other)
  Sender: FDA-Public Use
  Company Number: CN-PFIZER INC-PV202300197065

PATIENT
  Age: 13 Month
  Sex: Male

DRUGS (6)
  1. METHOTREXATE SODIUM [Suspect]
     Active Substance: METHOTREXATE SODIUM
     Indication: Chemotherapy
     Dosage: 9.5 ML, 1X/DAY
     Route: 041
     Dates: start: 20231118, end: 20231118
  2. METHOTREXATE SODIUM [Suspect]
     Active Substance: METHOTREXATE SODIUM
     Dosage: 2 ML, 1X/DAY
     Route: 041
     Dates: start: 20231118, end: 20231118
  3. METHOTREXATE [Suspect]
     Active Substance: METHOTREXATE
     Indication: Chemotherapy
     Dosage: 9 MG, 1X/DAY
     Route: 037
     Dates: start: 20231118, end: 20231118
  4. SODIUM CHLORIDE [Concomitant]
     Active Substance: SODIUM CHLORIDE
     Indication: Vehicle solution use
     Dosage: 250 ML, 1X/DAY
     Route: 041
     Dates: start: 20231118, end: 20231118
  5. SODIUM CHLORIDE [Concomitant]
     Active Substance: SODIUM CHLORIDE
     Indication: Vehicle solution use
     Dosage: 25 ML, 1X/DAY
     Route: 041
     Dates: start: 20231118, end: 20231118
  6. SODIUM CHLORIDE [Concomitant]
     Active Substance: SODIUM CHLORIDE
     Indication: Vehicle solution use
     Dosage: 3 ML, 1X/DAY
     Route: 037
     Dates: start: 20231118, end: 20231118

REACTIONS (1)
  - Anal erythema [Recovering/Resolving]

NARRATIVE: CASE EVENT DATE: 20231119
